FAERS Safety Report 19850374 (Version 1)
Quarter: 2021Q3

REPORT INFORMATION
  Report Type: Report from Study
  Country: US (occurrence: US)
  Receive Date: 20210917
  Receipt Date: 20210917
  Transmission Date: 20211014
  Serious: Yes (Hospitalization, Other)
  Sender: FDA-Public Use
  Company Number: US-HORIZON THERAPEUTICS-HZN-2021-006144

PATIENT

DRUGS (1)
  1. BUPHENYL [Suspect]
     Active Substance: SODIUM PHENYLBUTYRATE
     Indication: ORNITHINE TRANSCARBAMOYLASE DEFICIENCY
     Dosage: UNK
     Route: 065
     Dates: start: 20180821

REACTIONS (3)
  - Brain injury [Unknown]
  - Ammonia increased [Unknown]
  - Abdominal pain upper [Unknown]
